FAERS Safety Report 6446448-5 (Version None)
Quarter: 2009Q4

REPORT INFORMATION
  Report Type: 
  Country: None (occurrence: None)
  Receive Date: 20091116
  Receipt Date: 20091110
  Transmission Date: 20100525
  Serious: Yes (Other)
  Sender: FDA-Public Use
  Company Number: 2009SP035867

PATIENT
  Sex: Male

DRUGS (2)
  1. INTRON A [Suspect]
     Indication: DRUG USE FOR UNKNOWN INDICATION
     Dosage: BIW
  2. REBETOL [Suspect]
     Indication: DRUG USE FOR UNKNOWN INDICATION
     Dosage: PO
     Route: 048

REACTIONS (1)
  - TUBERCULOSIS [None]
